FAERS Safety Report 18241137 (Version 1)
Quarter: 2020Q3

REPORT INFORMATION
  Report Type: Spontaneous
  Country: US (occurrence: US)
  Receive Date: 20200904
  Receipt Date: 20200904
  Transmission Date: 20201103
  Serious: Yes (Hospitalization)
  Sender: FDA-Public Use
  Company Number: None

PATIENT
  Age: 59 Year
  Sex: Male
  Weight: 85 kg

DRUGS (1)
  1. NIVOLUMAB 240MG [Suspect]
     Active Substance: NIVOLUMAB
     Indication: GLIOBLASTOMA MULTIFORME
     Dosage: ?          OTHER ROUTE:IV?
     Route: 042
     Dates: start: 20170329

REACTIONS (7)
  - Joint injury [None]
  - Brain oedema [None]
  - Right ventricle outflow tract obstruction [None]
  - Confusional state [None]
  - Hemiparesis [None]
  - Fall [None]
  - Neoplasm progression [None]

NARRATIVE: CASE EVENT DATE: 20161013
